FAERS Safety Report 23492531 (Version 1)
Quarter: 2024Q1

REPORT INFORMATION
  Report Type: Spontaneous
  Country: JP (occurrence: JP)
  Receive Date: 20240207
  Receipt Date: 20240207
  Transmission Date: 20240410
  Serious: Yes (Hospitalization, Other)
  Sender: FDA-Public Use
  Company Number: JP-AJANTA-2024AJA00014

PATIENT
  Age: 21 Year
  Sex: Female
  Weight: 53 kg

DRUGS (6)
  1. GUANFACINE [Suspect]
     Active Substance: GUANFACINE
     Indication: Attention deficit hyperactivity disorder
     Dosage: EXTENDED RELEASE
  2. GUANFACINE [Suspect]
     Active Substance: GUANFACINE
     Dosage: EXTENDED RELEASE
  3. GUANFACINE [Suspect]
     Active Substance: GUANFACINE
     Dosage: EXTENDED RELEASE
  4. SERTRALINE [Concomitant]
     Active Substance: SERTRALINE HYDROCHLORIDE
  5. FLUNITRAZEPAM [Concomitant]
     Active Substance: FLUNITRAZEPAM
  6. BEPOTASTINE BESYLATE [Concomitant]
     Active Substance: BEPOTASTINE BESYLATE

REACTIONS (5)
  - Electrocardiogram QT prolonged [Recovered/Resolved]
  - Overdose [Recovered/Resolved]
  - Toxicity to various agents [Recovered/Resolved]
  - Bradycardia [Recovered/Resolved]
  - Hypotension [Recovered/Resolved]
